FAERS Safety Report 5885799-X (Version None)
Quarter: 2008Q3

REPORT INFORMATION
  Report Type: 
  Country: None (occurrence: None)
  Receive Date: 20080917
  Receipt Date: 20080902
  Transmission Date: 20090109
  Serious: Yes (Hospitalization)
  Sender: FDA-Public Use
  Company Number: US-JNJFOC-20080903192

PATIENT
  Sex: Male
  Weight: 97.51 kg

DRUGS (22)
  1. DOXIL [Suspect]
     Indication: MULTIPLE MYELOMA
     Route: 042
  2. VELCADE [Suspect]
     Route: 065
  3. VELCADE [Suspect]
     Indication: MULTIPLE MYELOMA
     Route: 065
  4. ASPIRIN [Concomitant]
     Route: 065
  5. GLIPIZIDE [Concomitant]
     Route: 065
  6. TRIAMTERENE [Concomitant]
     Route: 065
  7. CITALOPRAM HYDROBROMIDE [Concomitant]
     Route: 065
  8. XANAX [Concomitant]
     Route: 065
  9. DIGOXIN [Concomitant]
     Route: 065
  10. AMLODIPINE BESYLATE [Concomitant]
     Route: 065
  11. SIMVASTATIN [Concomitant]
     Route: 065
  12. ASCORBIC ACID [Concomitant]
     Route: 065
  13. VITAMIN D [Concomitant]
     Route: 065
  14. FISH OIL [Concomitant]
     Route: 065
  15. PANTOPRAZOLE [Concomitant]
     Route: 065
  16. LANTUS [Concomitant]
     Route: 065
  17. HUMULIN R [Concomitant]
     Route: 065
  18. TYLOX [Concomitant]
     Route: 065
  19. MINOXIDIL [Concomitant]
     Route: 065
  20. DYAZIDE [Concomitant]
     Route: 065
  21. DURAGESIC-100 [Concomitant]
     Route: 065
  22. METOPROLOL [Concomitant]
     Route: 065

REACTIONS (17)
  - ANXIETY [None]
  - ASPIRATION [None]
  - ATELECTASIS [None]
  - ATRIAL FIBRILLATION [None]
  - BRAIN NATRIURETIC PEPTIDE INCREASED [None]
  - CARDIAC FAILURE [None]
  - DYSPNOEA EXERTIONAL [None]
  - ELECTROCARDIOGRAM T WAVE ABNORMAL [None]
  - LOBAR PNEUMONIA [None]
  - MEDIASTINAL FIBROSIS [None]
  - OEDEMA PERIPHERAL [None]
  - PANCYTOPENIA [None]
  - PANIC ATTACK [None]
  - PLEURAL EFFUSION [None]
  - QRS AXIS ABNORMAL [None]
  - RADIATION OESOPHAGITIS [None]
  - RADIATION PNEUMONITIS [None]
